FAERS Safety Report 4850572-8 (Version None)
Quarter: 2005Q4

REPORT INFORMATION
  Report Type: 
  Country: None (occurrence: None)
  Receive Date: 20051208
  Receipt Date: 20041024
  Transmission Date: 20060501
  Serious: Yes (Other)
  Sender: FDA-Public Use
  Company Number: 2005BH000876

PATIENT
  Age: 65 Year
  Sex: Male
  Weight: 86 kg

DRUGS (13)
  1. CLINIMIX 2.75/10 SULFITE FREE IN DEXTROSE 10% [Suspect]
     Indication: PANCREATITIS
     Dosage: 1 ML; EVERY DAY; IV
     Route: 042
     Dates: start: 20040920, end: 20040921
  2. MULTIVITAMIN [Suspect]
     Indication: PARENTERAL NUTRITION
     Dosage: 1 ML; EVERY DAY; IV
     Route: 042
     Dates: start: 20040920, end: 20040921
  3. ATENOLOL [Concomitant]
  4. RANITIDINE [Concomitant]
  5. TICLOPIDINE HCL [Concomitant]
  6. SIMVASTATIN [Concomitant]
  7. RAMIPRIL [Concomitant]
  8. CALCIUM CARBONATE [Concomitant]
  9. PANTOPRAZOLE [Concomitant]
  10. LORAZEPAM [Concomitant]
  11. HALOPERIDOL [Concomitant]
  12. NICODERM [Concomitant]
  13. COMBIVENT [Concomitant]

REACTIONS (6)
  - AURICULAR SWELLING [None]
  - EYELID OEDEMA [None]
  - RASH PRURITIC [None]
  - SWELLING FACE [None]
  - URTICARIA GENERALISED [None]
  - WHEEZING [None]
